FAERS Safety Report 5752852-0 (Version None)
Quarter: 2008Q2

REPORT INFORMATION
  Report Type: 
  Country: None (occurrence: None)
  Receive Date: 20080529
  Receipt Date: 20080519
  Transmission Date: 20081010
  Serious: Yes (Hospitalization, Other)
  Sender: FDA-Public Use
  Company Number: US-PFIZER INC-2008043428

PATIENT
  Sex: Male

DRUGS (6)
  1. LIPITOR [Suspect]
  2. VYTORIN [Suspect]
     Indication: BLOOD CHOLESTEROL
     Dosage: TEXT:10/40 MG DAILY
     Route: 048
  3. METOPROLOL TARTRATE [Concomitant]
  4. KLOR-CON [Concomitant]
  5. ALTACE [Concomitant]
  6. PLAVIX [Concomitant]

REACTIONS (2)
  - CORONARY ARTERY BYPASS [None]
  - MYOCARDIAL INFARCTION [None]
